FAERS Safety Report 24639768 (Version 2)
Quarter: 2024Q4

REPORT INFORMATION
  Report Type: Spontaneous
  Country: JP (occurrence: JP)
  Receive Date: 20241120
  Receipt Date: 20241122
  Transmission Date: 20250114
  Serious: Yes (Other)
  Sender: GLAXOSMITHKLINE
  Company Number: None

PATIENT
  Sex: Female

DRUGS (7)
  1. BENLYSTA [Suspect]
     Active Substance: BELIMUMAB
     Indication: Systemic lupus erythematosus
     Dosage: 200 MG, WE
     Dates: start: 20230119, end: 20240620
  2. QUETIAPINE [Concomitant]
     Active Substance: QUETIAPINE
     Indication: Depression
     Dosage: 25 MG
  3. QUETIAPINE [Concomitant]
     Active Substance: QUETIAPINE
     Indication: Mental disorder due to a general medical condition
  4. ETIZOLAM [Concomitant]
     Active Substance: ETIZOLAM
     Indication: Depression
     Dosage: 3 MG
  5. ETIZOLAM [Concomitant]
     Active Substance: ETIZOLAM
     Indication: Mental disorder due to a general medical condition
  6. ZYPREXA [Concomitant]
     Active Substance: OLANZAPINE
     Indication: Depression
     Dosage: 5 MG
  7. ZYPREXA [Concomitant]
     Active Substance: OLANZAPINE
     Indication: Mental disorder due to a general medical condition

REACTIONS (4)
  - Suicidal ideation [Recovering/Resolving]
  - Ovarian neoplasm [Unknown]
  - Affect lability [Unknown]
  - Overdose [Unknown]
